FAERS Safety Report 25953943 (Version 1)
Quarter: 2025Q4

REPORT INFORMATION
  Report Type: Spontaneous
  Country: US (occurrence: US)
  Receive Date: 20251023
  Receipt Date: 20251023
  Transmission Date: 20260117
  Serious: No
  Sender: PFIZER
  Company Number: US-PFIZER INC-PV202500124594

PATIENT
  Age: 50 Year
  Sex: Female

DRUGS (2)
  1. XELJANZ [Suspect]
     Active Substance: TOFACITINIB CITRATE
     Indication: Psoriatic arthropathy
     Dosage: 5 MG, 2X/DAY
     Route: 048
     Dates: start: 20250820, end: 202509
  2. REMICADE [Concomitant]
     Active Substance: INFLIXIMAB
     Dosage: UNK SDV (SINGLE-DOSE VIAL)

REACTIONS (3)
  - Migraine [Unknown]
  - Candida infection [Unknown]
  - Aphonia [Unknown]

NARRATIVE: CASE EVENT DATE: 20250101
